FAERS Safety Report 10746447 (Version 2)
Quarter: 2015Q1

REPORT INFORMATION
  Report Type: Report from Study
  Country: US (occurrence: US)
  Receive Date: 20150128
  Receipt Date: 20150302
  Transmission Date: 20150721
  Serious: Yes (Death, Hospitalization)
  Sender: FDA-Public Use
  Company Number: PHEH2015US001844

PATIENT
  Age: 17 Year
  Sex: Male
  Weight: 66 kg

DRUGS (2)
  1. TOBI PODHALER [Suspect]
     Active Substance: TOBRAMYCIN
     Indication: CYSTIC FIBROSIS
     Dosage: 112 MG, BID EVERY OTHER MONTH
     Route: 055
     Dates: start: 20140414
  2. PULMOZYME [Concomitant]
     Active Substance: DORNASE ALFA
     Indication: PRODUCT USED FOR UNKNOWN INDICATION
     Route: 065

REACTIONS (2)
  - Multi-organ failure [Fatal]
  - Respiratory failure [Fatal]

NARRATIVE: CASE EVENT DATE: 20141109
